FAERS Safety Report 9353305 (Version 2)
Quarter: 2014Q1

REPORT INFORMATION
  Report Type: Spontaneous
  Country: US (occurrence: US)
  Receive Date: 20130618
  Receipt Date: 20140128
  Transmission Date: 20141002
  Serious: Yes (Life-Threatening, Other)
  Sender: FDA-Public Use
  Company Number: US-BAYER-2013-072426

PATIENT
  Age: 22 Year
  Sex: Female

DRUGS (8)
  1. YAZ [Suspect]
     Indication: CONTRACEPTION
     Dosage: UNK
     Dates: start: 200801
  2. PRENATAL VITAMINS [Concomitant]
  3. TUMS [CALCIUM CARBONATE] [Concomitant]
  4. ROLAIDS [CALCIUM CARBONATE,MAGNESIUM HYDROXIDE] [Concomitant]
  5. PROTONIX [Concomitant]
     Dosage: 40 MG, UNK
  6. ZOFRAN [Concomitant]
     Dosage: 8 MG, UNK
  7. LORTAB [Concomitant]
     Indication: PAIN
     Dosage: 5 MG, Q4HR
  8. PHENERGAN [Concomitant]
     Indication: VOMITING
     Dosage: 25 MG, UNK

REACTIONS (13)
  - Gallbladder non-functioning [None]
  - Cholecystitis chronic [None]
  - Organ failure [None]
  - Stress [None]
  - Fatigue [None]
  - Asthenia [None]
  - Pain [None]
  - Anxiety [None]
  - Anhedonia [None]
  - General physical health deterioration [None]
  - Injury [None]
  - Abdominal pain [None]
  - Fear of disease [None]
